FAERS Safety Report 18376328 (Version 1)
Quarter: 2020Q4

REPORT INFORMATION
  Report Type: Spontaneous
  Country: US (occurrence: US)
  Receive Date: 20201011
  Receipt Date: 20201011
  Transmission Date: 20210114
  Serious: No
  Sender: FDA-Public Use
  Company Number: None

PATIENT
  Age: 24 Year
  Sex: Female
  Weight: 60.75 kg

DRUGS (4)
  1. MAGNESIUM MALATE 1350MG [Concomitant]
  2. VYVANSE 70MG [Concomitant]
  3. LESSINA BIRTH CONTROL [Concomitant]
  4. DEXTROAMPHET SACCHARAT, AMPHET ASPARTATE, DEXTROAMPHET SULFATE AND AMPHET SULFAT [Suspect]
     Active Substance: AMPHETAMINE ASPARTATE\AMPHETAMINE SULFATE\DEXTROAMPHETAMINE SACCHARATE\DEXTROAMPHETAMINE SULFATE
     Indication: ATTENTION DEFICIT HYPERACTIVITY DISORDER
     Dosage: ?          QUANTITY:75 TABLET(S);?
     Route: 048
     Dates: start: 20200913, end: 20201001

REACTIONS (8)
  - Drug ineffective [None]
  - Anxiety [None]
  - Blood pressure increased [None]
  - Headache [None]
  - Product substitution issue [None]
  - Abdominal pain upper [None]
  - Dyspepsia [None]
  - Adverse drug reaction [None]

NARRATIVE: CASE EVENT DATE: 20200913
